FAERS Safety Report 7736445-1 (Version None)
Quarter: 2011Q3

REPORT INFORMATION
  Report Type: 
  Country: None (occurrence: None)
  Receive Date: 20110908
  Receipt Date: 20110902
  Transmission Date: 20111222
  Serious: Yes (Life-Threatening, Hospitalization)
  Sender: FDA-Public Use
  Company Number: JP-SANOFI-AVENTIS-2011SA055635

PATIENT
  Age: 61 Year
  Sex: Male
  Weight: 65 kg

DRUGS (6)
  1. OXALIPLATIN [Suspect]
     Route: 041
     Dates: start: 20110531
  2. OXALIPLATIN [Suspect]
     Route: 041
     Dates: start: 20110510
  3. XELODA [Suspect]
     Route: 048
     Dates: start: 20110531, end: 20110610
  4. AVASTIN [Suspect]
     Route: 041
     Dates: start: 20110531
  5. AVASTIN [Suspect]
     Route: 041
     Dates: start: 20110510
  6. XELODA [Suspect]
     Route: 048
     Dates: start: 20110510, end: 20110524

REACTIONS (4)
  - COLITIS [None]
  - DISSEMINATED INTRAVASCULAR COAGULATION [None]
  - DIARRHOEA [None]
  - SEPSIS [None]
